FAERS Safety Report 15931381 (Version 2)
Quarter: 2021Q3

REPORT INFORMATION
  Report Type: Spontaneous
  Country: GB (occurrence: GB)
  Receive Date: 20190207
  Receipt Date: 20210914
  Transmission Date: 20211014
  Serious: Yes (Other)
  Sender: FDA-Public Use
  Company Number: GB-TAKEDA-2019TUS005016

PATIENT
  Sex: Male

DRUGS (3)
  1. ASPRIN [Concomitant]
     Active Substance: ASPIRIN
     Dosage: UNK, QD
  2. APIXABAN [Concomitant]
     Active Substance: APIXABAN
     Dosage: UNK, QD
  3. ENTYVIO [Suspect]
     Active Substance: VEDOLIZUMAB
     Indication: COLITIS ULCERATIVE
     Dosage: 300 MILLIGRAM
     Route: 042

REACTIONS (2)
  - Treatment noncompliance [Not Recovered/Not Resolved]
  - Myocardial infarction [Not Recovered/Not Resolved]
